FAERS Safety Report 19063984 (Version 1)
Quarter: 2021Q1

REPORT INFORMATION
  Report Type: Spontaneous
  Country: FR (occurrence: FR)
  Receive Date: 20210326
  Receipt Date: 20210326
  Transmission Date: 20210420
  Serious: Yes (Other)
  Sender: FDA-Public Use
  Company Number: FR-TEVA-2021-FR-1893993

PATIENT
  Age: 50 Year
  Sex: Male
  Weight: 72 kg

DRUGS (8)
  1. ROSUVASTATINE [Concomitant]
     Active Substance: ROSUVASTATIN
  2. ENSTILAR 50 MICROGRAMMES/0,5MG/G, MOUSSE CUTANEE [Concomitant]
     Dosage: SKIN FOAM
     Route: 003
  3. AMLODIPINE [Concomitant]
     Active Substance: AMLODIPINE BESYLATE
  4. RAMIPRIL. [Suspect]
     Active Substance: RAMIPRIL
     Indication: HYPERTENSION
     Dosage: 10 MG
     Route: 048
     Dates: start: 20191125
  5. NEBIVOLOL. [Concomitant]
     Active Substance: NEBIVOLOL
  6. RILMENIDINE BIOGARAN 1 MG, COMPRIME [Concomitant]
     Route: 048
  7. METHOTREXATE. [Suspect]
     Active Substance: METHOTREXATE
     Indication: PSORIASIS
     Dosage: 10 MG
     Route: 048
     Dates: start: 20210208, end: 20210215
  8. SPECIAFOLDINE 5 MG, COMPRIME [Concomitant]
     Active Substance: FOLIC ACID
     Route: 048

REACTIONS (2)
  - Angioedema [Recovered/Resolved]
  - Oedema peripheral [Recovered/Resolved]

NARRATIVE: CASE EVENT DATE: 20210208
